FAERS Safety Report 23278788 (Version 3)
Quarter: 2024Q1

REPORT INFORMATION
  Report Type: Report from Study
  Country: US (occurrence: US)
  Receive Date: 20231208
  Receipt Date: 20240109
  Transmission Date: 20240410
  Serious: Yes (Other)
  Sender: FDA-Public Use
  Company Number: US-BAYER-2023A171418

PATIENT
  Age: 70 Year
  Sex: Male

DRUGS (9)
  1. NUBEQA [Suspect]
     Active Substance: DAROLUTAMIDE
     Indication: Seasonal allergy
     Dosage: 600 MG, BID
     Route: 048
     Dates: start: 20231020
  2. NUBEQA [Suspect]
     Active Substance: DAROLUTAMIDE
     Indication: Prostate cancer
     Dosage: 600 MG, BID
     Dates: start: 20231024
  3. ACETAMINOPHEN [Concomitant]
     Active Substance: ACETAMINOPHEN
     Dosage: 500MG
  4. ASPIRIN [Concomitant]
     Active Substance: ASPIRIN
     Dosage: 81MG
  5. ATORVASTATIN [Concomitant]
     Active Substance: ATORVASTATIN
     Dosage: 20MG
  6. GABAPENTIN [Concomitant]
     Active Substance: GABAPENTIN
     Dosage: 300MG
  7. LIDOCAINE [Concomitant]
     Active Substance: LIDOCAINE
     Dosage: 5%
  8. METOPROLOL [Concomitant]
     Active Substance: METOPROLOL
     Dosage: 25MG
  9. XARELTO [Concomitant]
     Active Substance: RIVAROXABAN
     Dosage: 20MG

REACTIONS (4)
  - Gait inability [Not Recovered/Not Resolved]
  - Asthenia [Not Recovered/Not Resolved]
  - Fatigue [Not Recovered/Not Resolved]
  - Adverse drug reaction [None]
